FAERS Safety Report 15017809 (Version 1)
Quarter: 2018Q2

REPORT INFORMATION
  Report Type: Spontaneous
  Country: US (occurrence: US)
  Receive Date: 20180615
  Receipt Date: 20180615
  Transmission Date: 20180711
  Serious: No
  Sender: FDA-Public Use
  Company Number: US-BAYER-2018-105859

PATIENT
  Age: 82 Year
  Sex: Male
  Weight: 104 kg

DRUGS (4)
  1. SOTALOL. [Concomitant]
     Active Substance: SOTALOL
     Dosage: UNK
  2. ACIPHEX [Concomitant]
     Active Substance: RABEPRAZOLE SODIUM
     Dosage: UNK
  3. ALEVE [Suspect]
     Active Substance: NAPROXEN SODIUM
     Indication: FEELING ABNORMAL
  4. ALEVE [Suspect]
     Active Substance: NAPROXEN SODIUM
     Indication: INFLUENZA LIKE ILLNESS
     Dosage: 1 DF, PRN
     Route: 048
     Dates: start: 201805

REACTIONS (2)
  - Product use in unapproved indication [Unknown]
  - Product use in unapproved indication [Unknown]

NARRATIVE: CASE EVENT DATE: 201805
